FAERS Safety Report 5853849-2 (Version None)
Quarter: 2008Q3

REPORT INFORMATION
  Report Type: 
  Country: None (occurrence: None)
  Receive Date: 20080822
  Receipt Date: 20080812
  Transmission Date: 20090109
  Serious: Yes (Life-Threatening, Hospitalization, Other)
  Sender: FDA-Public Use
  Company Number: US-JNJFOC-20070505652

PATIENT
  Sex: Female
  Weight: 55.79 kg

DRUGS (20)
  1. TMC125 [Suspect]
     Route: 048
  2. TMC125 [Suspect]
     Indication: HIV INFECTION
     Dosage: TEMPORARILY STOPPED
     Route: 048
  3. PREZISTA [Suspect]
     Indication: HIV INFECTION
     Dosage: TEMPORARILY STOPPED
     Route: 048
  4. NORVIR [Suspect]
     Indication: HIV INFECTION
     Route: 048
  5. DILTIAZEM HCL [Suspect]
     Indication: DRUG USE FOR UNKNOWN INDICATION
     Route: 065
  6. METOPROLOL TARTRATE [Suspect]
     Indication: DRUG USE FOR UNKNOWN INDICATION
     Route: 065
  7. TRUVADA [Concomitant]
     Indication: HIV INFECTION
     Route: 048
  8. MK-0518 [Concomitant]
     Indication: HIV INFECTION
     Route: 048
  9. FLUCONAZOLE [Concomitant]
     Route: 065
  10. HYDROCHLOROTHIAZIDE [Concomitant]
     Route: 065
  11. DESLORATIDINE [Concomitant]
     Route: 065
  12. TRIMETH-SULFA DS [Concomitant]
     Route: 065
  13. ESCITALOPRAM [Concomitant]
     Route: 065
  14. ACYCLOVIR [Concomitant]
     Route: 065
  15. AZITHROMYCIN [Concomitant]
     Route: 065
  16. LEVOTHYROXINE SODIUM [Concomitant]
     Route: 065
  17. FUROSEMIDE [Concomitant]
     Route: 065
  18. FERROUS SULFATE TAB [Concomitant]
     Route: 065
  19. QUININE SULFATE [Concomitant]
     Route: 065
  20. LISINOPRIL [Concomitant]
     Route: 065

REACTIONS (18)
  - ALANINE AMINOTRANSFERASE INCREASED [None]
  - ASPARTATE AMINOTRANSFERASE INCREASED [None]
  - ASTHENIA [None]
  - BLOOD ALKALINE PHOSPHATASE INCREASED [None]
  - BRADYCARDIA [None]
  - BUNDLE BRANCH BLOCK LEFT [None]
  - CD4 LYMPHOCYTES DECREASED [None]
  - DYSPNOEA [None]
  - ELECTROCARDIOGRAM QRS COMPLEX SHORTENED [None]
  - HAEMODIALYSIS [None]
  - HYPERCOAGULATION [None]
  - HYPERKALAEMIA [None]
  - HYPERVENTILATION [None]
  - HYPOTENSION [None]
  - HYPOXIA [None]
  - LACTIC ACIDOSIS [None]
  - RENAL FAILURE ACUTE [None]
  - VOMITING [None]
